FAERS Safety Report 7331111-9 (Version None)
Quarter: 2011Q1

REPORT INFORMATION
  Report Type: 
  Country: None (occurrence: None)
  Receive Date: 20110228
  Receipt Date: 20110228
  Transmission Date: 20110831
  Serious: Yes (Other)
  Sender: FDA-Public Use
  Company Number: None

PATIENT
  Sex: Female
  Weight: 61.2356 kg

DRUGS (2)
  1. LEVAQUIN [Suspect]
     Indication: BRONCHITIS
     Dosage: 750 MG/5 DAYS 1/DAY MOUTH
     Route: 048
     Dates: start: 20110203, end: 20110208
  2. LEVAQUIN [Suspect]
     Indication: PULMONARY CONGESTION
     Dosage: 750 MG/5 DAYS 1/DAY MOUTH
     Route: 048
     Dates: start: 20110203, end: 20110208

REACTIONS (6)
  - MUSCLE TIGHTNESS [None]
  - ARTHRALGIA [None]
  - MUSCULOSKELETAL PAIN [None]
  - LOOSE BODY IN JOINT [None]
  - TENDON PAIN [None]
  - FEELING ABNORMAL [None]
